FAERS Safety Report 20131153 (Version 1)
Quarter: 2021Q4

REPORT INFORMATION
  Report Type: Spontaneous
  Country: US (occurrence: US)
  Receive Date: 20211130
  Receipt Date: 20211130
  Transmission Date: 20220304
  Serious: Yes (Other)
  Sender: FDA-Public Use
  Company Number: US-AMGEN-USASP2021182590

PATIENT
  Age: 67 Year
  Sex: Female

DRUGS (1)
  1. PROLIA [Suspect]
     Active Substance: DENOSUMAB
     Indication: Osteoporosis postmenopausal
     Dosage: UNK
     Route: 065

REACTIONS (12)
  - Spinal fracture [Unknown]
  - Hodgkin^s disease [Unknown]
  - Non-Hodgkin^s lymphoma [Unknown]
  - Retinal tear [Recovering/Resolving]
  - Nephrolithiasis [Unknown]
  - Pharyngeal swelling [Unknown]
  - Joint injury [Unknown]
  - Nerve compression [Unknown]
  - Blood cholesterol increased [Unknown]
  - Glucose tolerance impaired [Unknown]
  - Swelling face [Unknown]
  - Gastrooesophageal reflux disease [Unknown]

NARRATIVE: CASE EVENT DATE: 20150101
